FAERS Safety Report 5326742-1 (Version None)
Quarter: 2007Q2

REPORT INFORMATION
  Report Type: 
  Country: None (occurrence: None)
  Receive Date: 20070516
  Receipt Date: 20070504
  Transmission Date: 20071010
  Serious: Yes (Hospitalization)
  Sender: FDA-Public Use
  Company Number: GB-PFIZER INC-2007006633

PATIENT
  Sex: Female

DRUGS (3)
  1. EXEMESTANE [Suspect]
     Indication: BREAST CANCER
  2. COD-LIVER OIL [Concomitant]
  3. MEBEVERINE [Concomitant]

REACTIONS (1)
  - CEREBROVASCULAR ACCIDENT [None]
